FAERS Safety Report 13397039 (Version 2)
Quarter: 2017Q2

REPORT INFORMATION
  Report Type: Spontaneous
  Country: CA (occurrence: CA)
  Receive Date: 20170403
  Receipt Date: 20170410
  Transmission Date: 20170830
  Serious: Yes (Other)
  Sender: FDA-Public Use
  Company Number: CA-PFIZER INC-2017136820

PATIENT
  Sex: Female

DRUGS (4)
  1. ACTEMRA [Suspect]
     Active Substance: TOCILIZUMAB
     Dosage: 378 MG, MONTHLY
     Route: 042
     Dates: start: 20120328, end: 20120423
  2. HYDROXYCHLOROQUINE [Concomitant]
     Active Substance: HYDROXYCHLOROQUINE
     Dosage: 200 MG, DAILY
     Dates: start: 2008, end: 2011
  3. ORENCIA [Suspect]
     Active Substance: ABATACEPT
     Dosage: 500 MG, MONTHLY
     Route: 042
     Dates: start: 20121121, end: 20130416
  4. METHOTREXATE SODIUM. [Suspect]
     Active Substance: METHOTREXATE SODIUM
     Dosage: UNK
     Route: 048
     Dates: start: 2010, end: 2012

REACTIONS (2)
  - Tooth abscess [Unknown]
  - Hepatic enzyme increased [Unknown]
